FAERS Safety Report 7602785-X (Version None)
Quarter: 2011Q3

REPORT INFORMATION
  Report Type: 
  Country: None (occurrence: None)
  Receive Date: 20110711
  Receipt Date: 20110711
  Transmission Date: 20111222
  Serious: Yes (Hospitalization)
  Sender: FDA-Public Use
  Company Number: None

PATIENT
  Age: 41 Year
  Sex: Male
  Weight: 113.3993 kg

DRUGS (1)
  1. LURASIDONE HYDROCHLORIDE [Suspect]
     Indication: SCHIZOPHRENIA, PARANOID TYPE
     Dosage: 80 MG AT BEDTIME PO
     Route: 048
     Dates: start: 20110505, end: 20110701

REACTIONS (1)
  - AGGRESSION [None]
